FAERS Safety Report 24823092 (Version 1)
Quarter: 2025Q1

REPORT INFORMATION
  Report Type: Report from Study
  Country: US (occurrence: US)
  Receive Date: 20250109
  Receipt Date: 20250109
  Transmission Date: 20250408
  Serious: Yes (Hospitalization)
  Sender: ABBVIE
  Company Number: US-ABBVIE-6074549

PATIENT
  Age: 64 Year
  Sex: Female

DRUGS (1)
  1. SKYRIZI [Suspect]
     Active Substance: RISANKIZUMAB-RZAA
     Indication: Crohn^s disease
     Route: 058
     Dates: start: 20210420, end: 20210423

REACTIONS (5)
  - Bronchitis [Recovered/Resolved]
  - Pneumonia bacterial [Recovered/Resolved]
  - Vitamin B12 deficiency [Recovering/Resolving]
  - COVID-19 [Recovered/Resolved]
  - Vitamin D deficiency [Recovering/Resolving]

NARRATIVE: CASE EVENT DATE: 20210426
